FAERS Safety Report 13024567 (Version 2)
Quarter: 2017Q1

REPORT INFORMATION
  Report Type: Spontaneous
  Country: US (occurrence: US)
  Receive Date: 20161213
  Receipt Date: 20170103
  Transmission Date: 20170428
  Serious: No
  Sender: FDA-Public Use
  Company Number: US-ASTRAZENECA-2016SF30378

PATIENT
  Sex: Male

DRUGS (1)
  1. SYMBICORT [Suspect]
     Active Substance: BUDESONIDE\FORMOTEROL FUMARATE DIHYDRATE
     Dosage: 80/4.5MCG INHALER, 2 PUFFS TWICE A DAY
     Route: 055
     Dates: start: 201602

REACTIONS (7)
  - Off label use [Unknown]
  - Dyspnoea [Unknown]
  - Halo vision [Unknown]
  - Cataract [Unknown]
  - Product use issue [Unknown]
  - Vision blurred [Unknown]
  - Drug dose omission [Unknown]

NARRATIVE: CASE EVENT DATE: 2016
